FAERS Safety Report 18099383 (Version 24)
Quarter: 2023Q1

REPORT INFORMATION
  Report Type: Other
  Country: GB (occurrence: GB)
  Receive Date: 20200731
  Receipt Date: 20230220
  Transmission Date: 20230417
  Serious: Yes (Death, Life-Threatening, Hospitalization, Disabling, Other)
  Sender: FDA-Public Use
  Company Number: GB-MACLEODS PHARMACEUTICALS US LTD-MAC2020027492

PATIENT

DRUGS (109)
  1. IRBESARTAN [Interacting]
     Active Substance: IRBESARTAN
     Indication: Abdominal discomfort
     Dosage: 150 MILLIGRAM, QD (START DATE 12 SEP 2010)
     Route: 048
     Dates: start: 20100912
  2. IRBESARTAN [Interacting]
     Active Substance: IRBESARTAN
     Indication: Abdominal discomfort
     Dosage: 150 MILLIGRAM, QD (START DATE 17-SEP-2010)
     Route: 048
     Dates: start: 20100917
  3. TAMSULOSIN [Interacting]
     Active Substance: TAMSULOSIN
     Indication: Product used for unknown indication
     Dosage: 400 MICROGRAM, TAMSULOSIN HYDROCHLORIDE
     Route: 065
  4. OMEPRAZOLE [Interacting]
     Active Substance: OMEPRAZOLE
     Indication: Radiotherapy
     Dosage: 12 MILLIGRAM, BID, Q12H
     Route: 048
  5. OMEPRAZOLE [Interacting]
     Active Substance: OMEPRAZOLE
     Indication: Abdominal discomfort
     Dosage: 20 MILLIGRAM, BID, Q12H (40 MG ONCE A DAY)
     Route: 048
  6. OMEPRAZOLE [Interacting]
     Active Substance: OMEPRAZOLE
     Dosage: 20 MILLIGRAM
     Route: 048
  7. OMEPRAZOLE [Interacting]
     Active Substance: OMEPRAZOLE
     Dosage: 20 MILLIGRAM, BID, EVERY 12H, (40 MG, QD)
     Route: 048
  8. OMEPRAZOLE [Interacting]
     Active Substance: OMEPRAZOLE
     Dosage: 20 MILLIGRAM, BID, EVERY 12H (40 MG)
     Route: 048
  9. OMEPRAZOLE [Interacting]
     Active Substance: OMEPRAZOLE
     Dosage: 20 MILLIGRAM
     Route: 048
  10. OMEPRAZOLE [Interacting]
     Active Substance: OMEPRAZOLE
     Dosage: UNK
     Route: 065
  11. OMEPRAZOLE [Interacting]
     Active Substance: OMEPRAZOLE
     Dosage: 400 MILLIGRAM
     Route: 048
  12. OMEPRAZOLE [Interacting]
     Active Substance: OMEPRAZOLE
     Dosage: 20 MILLIGRAM
     Route: 048
  13. OMEPRAZOLE [Interacting]
     Active Substance: OMEPRAZOLE
     Dosage: 20 MILLIGRAM, BID, EVERY 12H
     Route: 048
  14. OMEPRAZOLE [Interacting]
     Active Substance: OMEPRAZOLE
     Dosage: 20 MILLIGRAM, BID (40 MG)
     Route: 048
  15. OMEPRAZOLE [Interacting]
     Active Substance: OMEPRAZOLE
     Dosage: 20 MILLIGRAM, BID (40 MG)
     Route: 048
  16. OMEPRAZOLE [Interacting]
     Active Substance: OMEPRAZOLE
     Dosage: 20 MILLIGRAM, BID (40 MG)
     Route: 048
  17. OMEPRAZOLE [Interacting]
     Active Substance: OMEPRAZOLE
     Dosage: 24 MILLIGRAM, QD (12 MILLIGRAM, BID)
     Route: 048
  18. OMEPRAZOLE [Interacting]
     Active Substance: OMEPRAZOLE
     Dosage: 400 MICROGRAM, QD  CUTANEOUS FOAM
     Route: 048
  19. OMEPRAZOLE [Interacting]
     Active Substance: OMEPRAZOLE
     Dosage: 20 MILLIGRAM, BID (20 MG, Q12H (20 MG, BID)
     Route: 048
  20. OMEPRAZOLE [Interacting]
     Active Substance: OMEPRAZOLE
     Dosage: 12 MILLIGRAM, BID, Q12H (24 MG, QD), CUTANEOUS FOAM
     Route: 048
  21. OMEPRAZOLE [Interacting]
     Active Substance: OMEPRAZOLE
     Dosage: 400 MICROGRAM
     Route: 048
  22. OMEPRAZOLE [Interacting]
     Active Substance: OMEPRAZOLE
     Dosage: 40 MILLIGRAM, QD, 20 MILLIGRAM, BID, (20 MG, Q12H (20 MG, BID) (CUTANEOUS FOAM)
     Route: 048
  23. OMEPRAZOLE [Interacting]
     Active Substance: OMEPRAZOLE
     Dosage: 20 MILLIGRAM, BID (40 MG, QD)
     Route: 048
  24. OMEPRAZOLE [Interacting]
     Active Substance: OMEPRAZOLE
     Dosage: 20 MILLIGRAM, BID
     Route: 048
  25. OMEPRAZOLE [Interacting]
     Active Substance: OMEPRAZOLE
     Dosage: UNK
     Route: 065
  26. OMEPRAZOLE [Interacting]
     Active Substance: OMEPRAZOLE
     Dosage: 800 MICROGRAM, QD (400 MICROGRAM BID)
     Route: 065
  27. CARBAMAZEPINE [Interacting]
     Active Substance: CARBAMAZEPINE
     Indication: Product used for unknown indication
     Dosage: 750 MILLIGRAM, QD
     Route: 048
  28. CIPROFLOXACIN [Interacting]
     Active Substance: CIPROFLOXACIN
     Indication: Abdominal discomfort
     Dosage: 1000 MILLIGRAM, QD: EAR/EYE DROPS, SOLUTION
     Route: 048
  29. CIPROFLOXACIN [Interacting]
     Active Substance: CIPROFLOXACIN
     Indication: Rheumatoid arthritis
     Dosage: 1000 MILLIGRAM, QD: EAR/EYE DROPS, SOLUTION
     Route: 048
     Dates: start: 20100917
  30. CIPROFLOXACIN [Interacting]
     Active Substance: CIPROFLOXACIN
     Indication: Depression
  31. SOLIFENACIN [Interacting]
     Active Substance: SOLIFENACIN
     Indication: Product used for unknown indication
     Dosage: UNK
     Route: 065
  32. DOMPERIDONE [Interacting]
     Active Substance: DOMPERIDONE
     Indication: Product used for unknown indication
     Dosage: UNK; FILM COATED TABLETS
     Route: 048
  33. LANSOPRAZOLE [Interacting]
     Active Substance: LANSOPRAZOLE
     Indication: Reflux laryngitis
     Dosage: UNK
     Route: 065
  34. LANSOPRAZOLE [Interacting]
     Active Substance: LANSOPRAZOLE
     Indication: Pruritus
  35. CLOZARIL [Interacting]
     Active Substance: CLOZAPINE
     Indication: Schizophrenia
     Dosage: UNK (TABLET) (START DATE 03-APR-2009)
     Route: 048
  36. CLOZARIL [Interacting]
     Active Substance: CLOZAPINE
     Dosage: 400 MILLIGRAM (START DATE 03-APR-2009 AND STOP DATE MAY 2020)
     Route: 048
  37. CLOZARIL [Interacting]
     Active Substance: CLOZAPINE
     Dosage: 400 MILLIGRAM (START DATE 03-APR-2009)
     Route: 048
  38. CLOZARIL [Interacting]
     Active Substance: CLOZAPINE
     Dosage: 8 MILLIGRAM, QD ONCE A DAY (8 MG, QD) (START DATE 21-MAY-2020 AND STOP DATE MAY 2020)
     Route: 048
  39. CLOZARIL [Interacting]
     Active Substance: CLOZAPINE
     Dosage: 8 MILLIGRAM, QD ONCE A DAY (8 MG, QD) (STOP DATE MAY 2020)
     Route: 048
  40. CLOZARIL [Interacting]
     Active Substance: CLOZAPINE
     Dosage: UNK, TABLET (START DATE 03-APR-2020)
     Route: 048
  41. CLOZARIL [Interacting]
     Active Substance: CLOZAPINE
     Dosage: 20 MILLIGRAM, BID (40 MG, QD)
     Route: 048
  42. CLOZARIL [Interacting]
     Active Substance: CLOZAPINE
     Dosage: 20 MILLIGRAM, BID
     Route: 048
  43. CLOZARIL [Interacting]
     Active Substance: CLOZAPINE
     Dosage: 8 MILLIGRAM, QD ONCE A DAY (8 MG, QD) (STOP DATE MAY 2020)
     Route: 048
  44. CLOZARIL [Interacting]
     Active Substance: CLOZAPINE
     Dosage: UNK, TABLET (START DATE 03-APR-2020)
     Route: 048
  45. CLOZARIL [Interacting]
     Active Substance: CLOZAPINE
     Dosage: 2 MILLIGRAM, QD (START DATE:28 MAY 2020)
     Route: 048
  46. CLOZARIL [Interacting]
     Active Substance: CLOZAPINE
     Dosage: 40 MILLIGRAM, QD
     Route: 048
  47. CLOZARIL [Interacting]
     Active Substance: CLOZAPINE
     Dosage: 400 MILLIGRAM (TABLET, START DATE 03-APR-2020)
     Route: 048
  48. CARBAMAZEPINE [Interacting]
     Active Substance: CARBAMAZEPINE
     Indication: Rheumatoid arthritis
     Dosage: UNK, DRUG ABUSE
     Route: 065
  49. SULFAGUANIDINE [Interacting]
     Active Substance: SULFAGUANIDINE
     Indication: Product used for unknown indication
     Dosage: 750 MILLIGRAM
     Route: 048
  50. DEXAMETHASONE [Interacting]
     Active Substance: DEXAMETHASONE
     Indication: Radiotherapy to pharynx
     Dosage: 2 MILLIGRAM, QD, ORAL SOLUTION
     Route: 048
     Dates: start: 20200521, end: 20200528
  51. DEXAMETHASONE [Interacting]
     Active Substance: DEXAMETHASONE
     Indication: Radiotherapy
     Dosage: 8 MILLIGRAM, QD (START DATE 15-MAY-2020 AND STOP DATE: MAY 2020), ORAL SOLUTION
     Route: 048
  52. DEXAMETHASONE [Interacting]
     Active Substance: DEXAMETHASONE
     Indication: Abdominal discomfort
     Dosage: 8 MILLIGRAM, QD (START DATE: 28 MAY 2020), ORAL SOLUTION
     Route: 048
  53. DEXAMETHASONE [Interacting]
     Active Substance: DEXAMETHASONE
     Dosage: 8 MILLIGRAM, QD (START DATE 21-MAY-2020 AND STOP DATE: MAY 2020), ORAL SOLUTION
     Route: 048
  54. DEXAMETHASONE [Interacting]
     Active Substance: DEXAMETHASONE
     Dosage: 8 MILLIGRAM (START DATE 28-MAY-2020)
     Route: 048
  55. DEXAMETHASONE [Interacting]
     Active Substance: DEXAMETHASONE
     Dosage: 8 MILLIGRAM
     Route: 048
  56. DEXAMETHASONE [Interacting]
     Active Substance: DEXAMETHASONE
     Dosage: 8 MILLIGRAM, QD, ORAL SOLUTION
     Route: 048
     Dates: start: 20200521, end: 20200528
  57. DEXAMETHASONE [Interacting]
     Active Substance: DEXAMETHASONE
     Dosage: 2 MILLIGRAM, QD
     Route: 048
     Dates: start: 20200521, end: 20200528
  58. DEXAMETHASONE [Interacting]
     Active Substance: DEXAMETHASONE
     Dosage: 10 MILLIGRAM, ORAL SOLUTION
     Route: 048
     Dates: start: 20200521, end: 20200528
  59. DEXAMETHASONE [Interacting]
     Active Substance: DEXAMETHASONE
     Dosage: 2 MILLIGRAM (START DATE 28-MAY-2020)
     Route: 048
  60. DEXAMETHASONE [Interacting]
     Active Substance: DEXAMETHASONE
     Dosage: UNK (START DATE MAY-2020)
     Route: 065
  61. SIMVASTATIN [Interacting]
     Active Substance: SIMVASTATIN
     Indication: Product used for unknown indication
     Dosage: UNK
     Route: 065
  62. SIMVASTATIN [Interacting]
     Active Substance: SIMVASTATIN
     Dosage: 20 MILLIGRAM
     Route: 048
  63. SIMVASTATIN [Interacting]
     Active Substance: SIMVASTATIN
     Dosage: 20 MILLIGRAM
     Route: 048
  64. SIMVASTATIN [Interacting]
     Active Substance: SIMVASTATIN
     Dosage: 400 MICROGRAM
     Route: 048
  65. FOLIC ACID [Interacting]
     Active Substance: FOLIC ACID
     Indication: Product used for unknown indication
     Dosage: 5 MILLIGRAM, (ORAL SOLUTION)
     Route: 048
  66. FOLIC ACID [Interacting]
     Active Substance: FOLIC ACID
     Dosage: 5 MILLIGRAM, (ORAL SOLUTION)
     Route: 048
  67. FOLIC ACID [Interacting]
     Active Substance: FOLIC ACID
     Dosage: 5 MILLIGRAM, (ORAL SOLUTION)
     Route: 048
  68. FOLIC ACID [Interacting]
     Active Substance: FOLIC ACID
     Dosage: 5 MILLIGRAM, (ORAL SOLUTION)
     Route: 048
  69. FOLIC ACID [Interacting]
     Active Substance: FOLIC ACID
     Dosage: 5 MILLIGRAM, (TABLET)
     Route: 048
  70. FOLIC ACID [Interacting]
     Active Substance: FOLIC ACID
     Dosage: 5 MILLIGRAM, (TABLET)
     Route: 048
  71. FOLIC ACID [Interacting]
     Active Substance: FOLIC ACID
     Dosage: 5 MILLIGRAM, (TABLET)
     Route: 048
  72. FOLIC ACID [Interacting]
     Active Substance: FOLIC ACID
     Dosage: 5 MILLIGRAM
     Route: 065
  73. PHYLLOCONTIN [Interacting]
     Active Substance: AMINOPHYLLINE
     Indication: Product used for unknown indication
     Dosage: 400 MILLIGRAM, QD (START DATE 17-SEP-2010); TABLET
     Route: 065
  74. PHYLLOCONTIN [Interacting]
     Active Substance: AMINOPHYLLINE
     Dosage: 400 MILLIGRAM, QD
     Route: 065
  75. DITIOCARB [Interacting]
     Active Substance: DITIOCARB
     Indication: Abdominal discomfort
     Dosage: 750 MILLIGRAM
     Route: 065
  76. GUANIDINE [Interacting]
     Active Substance: GUANIDINE
     Indication: Depression
     Dosage: 750 MILLIGRAM
     Route: 048
  77. GUANIDINE [Interacting]
     Active Substance: GUANIDINE
     Indication: Abdominal discomfort
     Dosage: 750 MILLIGRAM, QD (1,3-DIPHENYLGUANIDINE)
     Route: 065
  78. GUANIDINE [Interacting]
     Active Substance: GUANIDINE
     Dosage: UNK
     Route: 065
  79. GUANIDINE [Interacting]
     Active Substance: GUANIDINE
     Dosage: 750 MILLIGRAM, QD
     Route: 048
  80. CARBOCYSTEINE [Interacting]
     Active Substance: CARBOCYSTEINE
     Indication: Rheumatoid arthritis
     Dosage: 750 MILLIGRAM, DRUG ABUSE
     Route: 065
  81. CARBOCYSTEINE [Interacting]
     Active Substance: CARBOCYSTEINE
     Dosage: 750 MILLIGRAM, DRUG ABUSE (START DATE 17-SEP-2010)
     Route: 065
  82. CARBOCYSTEINE [Interacting]
     Active Substance: CARBOCYSTEINE
     Dosage: 750 MILLIGRAM, QD, DRUG ABUSE (START DATE 17-SEP-2010)
     Route: 048
  83. CIPROFLOXACIN [Interacting]
     Active Substance: CIPROFLOXACIN
     Indication: Rheumatoid arthritis
     Dosage: 1000 MILLIGRAM (START DATE 17-SEP-2010)
     Route: 065
  84. CIPROFLOXACIN [Interacting]
     Active Substance: CIPROFLOXACIN
     Indication: Abdominal discomfort
     Dosage: 1000 MILLIGRAM, QD (START DATE 17-SEP-2010)
     Route: 048
  85. CIPROFLOXACIN [Interacting]
     Active Substance: CIPROFLOXACIN
     Indication: Depression
  86. METHOTREXATE SODIUM [Interacting]
     Active Substance: METHOTREXATE SODIUM
     Indication: Rheumatoid arthritis
     Dosage: 17.5 MILLIGRAM, DRUG ABUSE (START DATE 17-SEP-2010)
     Route: 065
  87. METHOTREXATE SODIUM [Interacting]
     Active Substance: METHOTREXATE SODIUM
     Dosage: 18 MILLIGRAM, DRUG ABUSE (START DATE 17-SEP-2010)
     Route: 065
  88. METHOTREXATE SODIUM [Interacting]
     Active Substance: METHOTREXATE SODIUM
     Dosage: 17.5 MILLIGRAM, QD, DRUG ABUSE(START DATE 17-SEP-2010)
     Route: 048
  89. ENBREL [Interacting]
     Active Substance: ETANERCEPT
     Indication: Rheumatoid arthritis
     Dosage: 50 MILLIGRAM, QD (SOLUTION FOR INJECTION IN PRE-FILLED PEN, MYCLIC PENS, START DATE 17-SEP-2010)
     Route: 042
  90. DITIOCARB ZINC [Interacting]
     Active Substance: DITIOCARB ZINC
     Indication: Abdominal discomfort
     Dosage: 750 MILLIGRAM, QD
     Route: 065
  91. DITIOCARB ZINC [Interacting]
     Active Substance: DITIOCARB ZINC
     Indication: Depression
     Dosage: UNK UNK, QD
     Route: 065
  92. VENLAFAXINE HYDROCHLORIDE [Interacting]
     Active Substance: VENLAFAXINE HYDROCHLORIDE
     Indication: Depression
     Dosage: 225 MILLIGRAM, QD,PROLONGED RELEASE, DRUG ABUSE
     Route: 065
  93. VENLAFAXINE HYDROCHLORIDE [Interacting]
     Active Substance: VENLAFAXINE HYDROCHLORIDE
     Indication: Rheumatoid arthritis
  94. TRIMETHOPRIM [Interacting]
     Active Substance: TRIMETHOPRIM
     Indication: Product used for unknown indication
     Dosage: 200 MILLIGRAM, QD
     Route: 048
     Dates: start: 20190118, end: 20190120
  95. TRIMETHOPRIM [Interacting]
     Active Substance: TRIMETHOPRIM
     Dosage: 400 MILLIGRAM, QD
     Route: 048
     Dates: start: 20190118, end: 20190120
  96. TRIMETHOPRIM [Interacting]
     Active Substance: TRIMETHOPRIM
     Dosage: 1200 MILLIGRAM, QD
     Route: 048
     Dates: start: 20190118
  97. Charcoal,Activated [Concomitant]
     Indication: Product used for unknown indication
     Dosage: 750 MILLIGRAM
     Route: 065
  98. BENDROFLUMETHIAZIDE [Concomitant]
     Active Substance: BENDROFLUMETHIAZIDE
     Indication: Depression
     Dosage: UNK
     Route: 065
  99. BENDROFLUMETHIAZIDE [Concomitant]
     Active Substance: BENDROFLUMETHIAZIDE
     Indication: Pituitary tumour
  100. CETIRIZINE [Concomitant]
     Active Substance: CETIRIZINE HYDROCHLORIDE
     Indication: Abdominal discomfort
     Dosage: UNK
     Route: 065
  101. CETIRIZINE [Concomitant]
     Active Substance: CETIRIZINE HYDROCHLORIDE
     Indication: Abdominal discomfort
  102. CABERGOLINE [Concomitant]
     Active Substance: CABERGOLINE
     Indication: Empty sella syndrome
     Dosage: UNK
     Route: 065
  103. CABERGOLINE [Concomitant]
     Active Substance: CABERGOLINE
     Indication: Pituitary tumour
  104. ORUVAIL [Concomitant]
     Active Substance: KETOPROFEN
     Indication: Empty sella syndrome
     Dosage: UNK
     Route: 065
  105. LEVOTHYROXINE [Concomitant]
     Active Substance: LEVOTHYROXINE
     Indication: Abdominal discomfort
     Dosage: UNK
     Route: 065
  106. LEVOTHYROXINE [Concomitant]
     Active Substance: LEVOTHYROXINE
     Indication: Depression
  107. EZETIMIBE [Concomitant]
     Active Substance: EZETIMIBE
     Indication: Product used for unknown indication
     Dosage: UNK
     Route: 065
  108. BECLOMETHASONE DIPROPIONATE [Concomitant]
     Active Substance: BECLOMETHASONE DIPROPIONATE
     Indication: Product used for unknown indication
     Dosage: 146 DOSAGE FORM
     Route: 065
     Dates: start: 20190102
  109. DULOXETINE [Concomitant]
     Active Substance: DULOXETINE
     Indication: Product used for unknown indication
     Dosage: UNK
     Route: 065

REACTIONS (40)
  - COVID-19 [Fatal]
  - Condition aggravated [Fatal]
  - Lung neoplasm malignant [Fatal]
  - Schizophrenia [Fatal]
  - Radiation inflammation [Fatal]
  - Inflammation [Fatal]
  - Arthropathy [Fatal]
  - Lower respiratory tract infection [Fatal]
  - Pulmonary pain [Fatal]
  - Abdominal discomfort [Fatal]
  - Knee arthroplasty [Fatal]
  - Arthropathy [Fatal]
  - Rash [Fatal]
  - Schizophrenia [Fatal]
  - Gastrointestinal pain [Not Recovered/Not Resolved]
  - Abdominal pain [Recovered/Resolved]
  - Contusion [Not Recovered/Not Resolved]
  - Drug interaction [Unknown]
  - Diarrhoea [Recovered/Resolved]
  - Abdominal pain upper [Recovering/Resolving]
  - Feeling abnormal [Unknown]
  - Dementia [Unknown]
  - Food poisoning [Not Recovered/Not Resolved]
  - Genital ulceration [Recovered/Resolved]
  - Malaise [Unknown]
  - Irritable bowel syndrome [Unknown]
  - Mucosal inflammation [Recovered/Resolved]
  - Nightmare [Not Recovered/Not Resolved]
  - Blood potassium decreased [Unknown]
  - Illness [Recovering/Resolving]
  - Oral pain [Recovering/Resolving]
  - Peripheral swelling [Unknown]
  - Genital pain [Recovered/Resolved]
  - Vomiting [Unknown]
  - Product dose omission issue [Fatal]
  - Overdose [Fatal]
  - Drug abuse [Fatal]
  - Intentional product misuse [Fatal]
  - Off label use [Fatal]
  - Overdose [Fatal]

NARRATIVE: CASE EVENT DATE: 20190121
